FAERS Safety Report 16912942 (Version 1)
Quarter: 2019Q4

REPORT INFORMATION
  Report Type: Spontaneous
  Country: CA (occurrence: CA)
  Receive Date: 20191014
  Receipt Date: 20191014
  Transmission Date: 20200122
  Serious: Yes (Other)
  Sender: FDA-Public Use
  Company Number: CA-TEVA-2019-CA-1119731

PATIENT
  Age: 21 Year
  Sex: Male

DRUGS (6)
  1. CLONAZEPAM. [Suspect]
     Active Substance: CLONAZEPAM
     Dosage: 4 MILLIGRAM DAILY;
     Route: 065
  2. LANTUS [Concomitant]
     Active Substance: INSULIN GLARGINE
  3. TOPAMAX [Concomitant]
     Active Substance: TOPIRAMATE
  4. CARBAMAZEPINE CR SANDOZ [Suspect]
     Active Substance: CARBAMAZEPINE
     Indication: EPILEPSY
  5. METFORMIN [Concomitant]
     Active Substance: METFORMIN HYDROCHLORIDE
  6. CARBAMAZEPINE CR SANDOZ [Suspect]
     Active Substance: CARBAMAZEPINE
     Indication: SEIZURE
     Dosage: 800 MILLIGRAM DAILY;

REACTIONS (1)
  - Epilepsy [Unknown]
